FAERS Safety Report 7225269-X (Version None)
Quarter: 2011Q1

REPORT INFORMATION
  Report Type: 
  Country: None (occurrence: None)
  Receive Date: 20110113
  Receipt Date: 20110111
  Transmission Date: 20110831
  Serious: Yes (Hospitalization)
  Sender: FDA-Public Use
  Company Number: B0692973A

PATIENT
  Sex: Female

DRUGS (11)
  1. AUGMENTIN '125' [Concomitant]
     Indication: RESPIRATORY DISORDER
     Route: 048
     Dates: start: 20100501, end: 20100601
  2. CARDENSIEL [Concomitant]
     Dosage: 1.25MG PER DAY
     Route: 048
  3. COKENZEN [Concomitant]
     Route: 048
     Dates: end: 20100615
  4. LEVOTHYROX [Concomitant]
     Dosage: 50MCG PER DAY
     Route: 048
  5. CLAMOXYL [Suspect]
     Indication: RESPIRATORY DISORDER
     Route: 048
     Dates: start: 20100609, end: 20100610
  6. ZECLAR [Suspect]
     Indication: RESPIRATORY DISORDER
     Route: 048
     Dates: start: 20100609, end: 20100610
  7. FLECAINE [Concomitant]
     Dosage: 100MG TWICE PER DAY
     Route: 048
     Dates: end: 20100615
  8. FENOFIBRATE [Concomitant]
     Dosage: 200MG PER DAY
     Route: 048
     Dates: end: 20100615
  9. PREVISCAN [Suspect]
     Indication: PROPHYLAXIS
     Dosage: 10MG PER DAY
     Route: 048
     Dates: end: 20100610
  10. TRIFLUCAN [Concomitant]
     Indication: FUNGAL INFECTION
     Route: 048
     Dates: start: 20100601, end: 20100610
  11. PULMICORT [Concomitant]
     Indication: RESPIRATORY DISORDER
     Route: 055
     Dates: start: 20100501, end: 20100601

REACTIONS (2)
  - INTERNATIONAL NORMALISED RATIO INCREASED [None]
  - DRUG INTERACTION [None]
